FAERS Safety Report 24263934 (Version 1)
Quarter: 2024Q3

REPORT INFORMATION
  Report Type: Spontaneous
  Country: US (occurrence: US)
  Receive Date: 20240829
  Receipt Date: 20240829
  Transmission Date: 20241016
  Serious: No
  Sender: ROCHE
  Company Number: US-ROCHE-10000061502

PATIENT
  Age: 37 Year
  Sex: Male

DRUGS (1)
  1. BEVACIZUMAB [Suspect]
     Active Substance: BEVACIZUMAB
     Indication: Choroidal haemangioma
     Dosage: 1.25 MG/0.05 ML
     Route: 050

REACTIONS (2)
  - Off label use [Unknown]
  - Off label use [Unknown]
